FAERS Safety Report 9465364 (Version 1)
Quarter: 2013Q3

REPORT INFORMATION
  Report Type: Spontaneous
  Country: US (occurrence: US)
  Receive Date: 20130820
  Receipt Date: 20130820
  Transmission Date: 20140515
  Serious: Yes (Hospitalization)
  Sender: FDA-Public Use
  Company Number: US-BIOGENIDEC-2013BI074619

PATIENT
  Sex: Male

DRUGS (2)
  1. TYSABRI [Suspect]
     Indication: MULTIPLE SCLEROSIS
     Route: 042
     Dates: start: 20110415
  2. PERCOCET [Concomitant]
     Indication: INJURY

REACTIONS (4)
  - Multiple sclerosis relapse [Recovered/Resolved]
  - Vein disorder [Recovered/Resolved]
  - Infusion site scar [Unknown]
  - Abdominal discomfort [Not Recovered/Not Resolved]
